FAERS Safety Report 5909950-8 (Version None)
Quarter: 2008Q4

REPORT INFORMATION
  Report Type: 
  Country: None (occurrence: None)
  Receive Date: 20081007
  Receipt Date: 20080930
  Transmission Date: 20090506
  Serious: Yes (Other)
  Sender: FDA-Public Use
  Company Number: US-ROCHE-575593

PATIENT
  Sex: Female
  Weight: 50.8 kg

DRUGS (5)
  1. BONIVA [Suspect]
     Indication: OSTEOPOROSIS
     Dosage: DOSE: 3 MG/3ML
     Route: 042
     Dates: start: 20080401
  2. COUMADIN [Concomitant]
     Indication: ATRIAL FIBRILLATION
     Dosage: DOSE: DAILY (ADJUSTED DOSE PER LABS)
  3. LOTENSIN [Concomitant]
  4. CALCIUM/VITAMIN D [Concomitant]
  5. PREDNISONE [Concomitant]

REACTIONS (2)
  - ATRIAL FIBRILLATION [None]
  - SENSORY DISTURBANCE [None]
